FAERS Safety Report 21701008 (Version 1)
Quarter: 2022Q4

REPORT INFORMATION
  Report Type: Spontaneous
  Country: US (occurrence: None)
  Receive Date: 20221207
  Receipt Date: 20221207
  Transmission Date: 20230113
  Serious: Yes (Hospitalization)
  Sender: FDA-Public Use
  Company Number: None

PATIENT
  Age: 62 Year
  Sex: Female

DRUGS (4)
  1. GLATIRAMER ACETATE [Suspect]
     Active Substance: GLATIRAMER ACETATE
     Indication: Multiple sclerosis
     Dosage: FREQUENCY : AS NEEDED;?
     Route: 058
     Dates: start: 202111
  2. PANTOPRAZOLE [Concomitant]
     Active Substance: PANTOPRAZOLE
  3. CELEBREX [Concomitant]
     Active Substance: CELECOXIB
  4. VERAPAMIL [Concomitant]
     Active Substance: VERAPAMIL HYDROCHLORIDE

REACTIONS (5)
  - Hip fracture [None]
  - Balance disorder [None]
  - Urinary incontinence [None]
  - Memory impairment [None]
  - Visual impairment [None]

NARRATIVE: CASE EVENT DATE: 20221123
